FAERS Safety Report 10884679 (Version 2)
Quarter: 2015Q2

REPORT INFORMATION
  Report Type: Spontaneous
  Country: TR (occurrence: TR)
  Receive Date: 20150304
  Receipt Date: 20150423
  Transmission Date: 20150821
  Serious: Yes (Death)
  Sender: FDA-Public Use
  Company Number: TR-NOVOPROD-440260

PATIENT
  Age: 30 Year
  Sex: Male
  Weight: 70 kg

DRUGS (1)
  1. NOVOSEVEN [Suspect]
     Active Substance: COAGULATION FACTOR VIIA RECOMBINANT HUMAN
     Indication: FACTOR VIII DEFICIENCY
     Dosage: 84 MG, QD (100 MCG/KG WITH 12 TIMES/DAY)
     Route: 042
     Dates: start: 20141227, end: 20150112

REACTIONS (2)
  - Intra-abdominal haemorrhage [Fatal]
  - Abdominal sepsis [Fatal]
